FAERS Safety Report 9283854 (Version 1)
Quarter: 2013Q2

REPORT INFORMATION
  Report Type: Spontaneous
  Country: GB (occurrence: GB)
  Receive Date: 20130510
  Receipt Date: 20130510
  Transmission Date: 20140414
  Serious: Yes (Hospitalization)
  Sender: FDA-Public Use
  Company Number: GB-ABBOTT-13X-167-1083968-00

PATIENT
  Age: 49 Year
  Sex: Female

DRUGS (13)
  1. IBUPROFEN [Suspect]
     Indication: PRODUCT USED FOR UNKNOWN INDICATION
     Dosage: 200MGX24
     Route: 048
     Dates: start: 20130124, end: 20130124
  2. FLUOXETINE [Suspect]
     Indication: PRODUCT USED FOR UNKNOWN INDICATION
     Dosage: 20MGX56
     Route: 048
     Dates: start: 20130124, end: 20130124
  3. PARACETAMOL [Suspect]
     Indication: PRODUCT USED FOR UNKNOWN INDICATION
     Dosage: 500MGX16
     Route: 048
     Dates: start: 20130124, end: 20130124
  4. RAMIPRIL [Suspect]
     Indication: PRODUCT USED FOR UNKNOWN INDICATION
     Dosage: 2.5MGX56
     Route: 048
     Dates: start: 20130124, end: 20130124
  5. CLOPIDOGREL [Suspect]
     Indication: PRODUCT USED FOR UNKNOWN INDICATION
     Dosage: 75MGX28
     Route: 048
     Dates: start: 20130124, end: 20130124
  6. FUROSEMIDE [Suspect]
     Indication: PRODUCT USED FOR UNKNOWN INDICATION
     Dosage: 40MGX28
     Route: 048
     Dates: start: 20130124, end: 20130124
  7. ZAPONEX [Suspect]
     Indication: SCHIZOPHRENIA
     Dosage: UNKNOWN TABLETS
     Route: 048
     Dates: start: 20130124, end: 20130124
  8. ZAPONEX [Suspect]
     Route: 048
     Dates: start: 20130304
  9. ZAPONEX [Suspect]
     Route: 048
     Dates: start: 20041014, end: 20130129
  10. BISOPROLOL [Suspect]
     Indication: PRODUCT USED FOR UNKNOWN INDICATION
     Dosage: 10MGX56
     Route: 048
     Dates: start: 20130124, end: 20130124
  11. ASPIRIN [Suspect]
     Indication: PRODUCT USED FOR UNKNOWN INDICATION
     Dosage: UNKNOWN QUANTITY
     Route: 048
     Dates: start: 20130124, end: 20130124
  12. LANSOPRAZOLE [Concomitant]
     Indication: DYSPEPSIA
     Route: 048
  13. GAVISCON [Concomitant]
     Indication: DYSPEPSIA
     Route: 048

REACTIONS (10)
  - Gastrointestinal disorder [Unknown]
  - Overdose [Recovered/Resolved]
  - Renal failure acute [Recovered/Resolved]
  - Coma scale abnormal [Unknown]
  - Alanine aminotransferase abnormal [Recovered/Resolved]
  - Agitation [Unknown]
  - Confusional state [Unknown]
  - Blood cholesterol increased [Not Recovered/Not Resolved]
  - Dysarthria [Unknown]
  - Dehydration [Unknown]
